FAERS Safety Report 10208293 (Version 1)
Quarter: 2014Q2

REPORT INFORMATION
  Report Type: Spontaneous
  Country: US (occurrence: None)
  Receive Date: 20140529
  Receipt Date: 20140529
  Transmission Date: 20141212
  Serious: Yes (Hospitalization)
  Sender: FDA-Public Use
  Company Number: None

PATIENT
  Age: 62 Year
  Sex: Male
  Weight: 104 kg

DRUGS (2)
  1. ASPIRIN [Suspect]
     Indication: THROMBOSIS PROPHYLAXIS
     Route: 048
     Dates: start: 20130809, end: 20140408
  2. NAPROXEN [Suspect]
     Indication: PAIN
     Route: 048
     Dates: start: 20130424, end: 20140408

REACTIONS (3)
  - Anaemia [None]
  - Haemorrhage intracranial [None]
  - Fall [None]
